FAERS Safety Report 19256974 (Version 2)
Quarter: 2021Q2

REPORT INFORMATION
  Report Type: Spontaneous
  Country: US (occurrence: US)
  Receive Date: 20210513
  Receipt Date: 20210609
  Transmission Date: 20210717
  Serious: No
  Sender: FDA-Public Use
  Company Number: US-PFIZER INC-2021487987

PATIENT
  Age: 60 Year
  Sex: Male
  Weight: 79.37 kg

DRUGS (2)
  1. DEEP SEA PREMIUM SALINE [Concomitant]
     Dosage: UNK
     Dates: start: 20210412, end: 20210412
  2. LIDOCAINE HCL [Suspect]
     Active Substance: LIDOCAINE HYDROCHLORIDE
     Indication: NERVE COMPRESSION
     Dosage: 1 ML
     Dates: start: 20210412

REACTIONS (4)
  - Pain [Recovered/Resolved]
  - Oedema [Recovered/Resolved]
  - Pyrexia [Recovered/Resolved]
  - Contusion [Recovered/Resolved]

NARRATIVE: CASE EVENT DATE: 20210412
